FAERS Safety Report 13512381 (Version 3)
Quarter: 2019Q3

REPORT INFORMATION
  Report Type: Report from Study
  Country: None (occurrence: BR)
  Receive Date: 20170504
  Receipt Date: 20190905
  Transmission Date: 20191004
  Serious: Yes (Other)
  Sender: FDA-Public Use
  Company Number: BR-ABBVIE-17K-020-1960845-00

PATIENT
  Age: 48 Year
  Sex: Female
  Weight: 65 kg

DRUGS (10)
  1. SULFASALAZINE. [Concomitant]
     Active Substance: SULFASALAZINE
     Indication: RHEUMATOID ARTHRITIS
     Route: 048
     Dates: start: 2015
  2. OMEPRAZOLE. [Concomitant]
     Active Substance: OMEPRAZOLE
     Indication: GASTRIC DISORDER
     Route: 048
     Dates: start: 2015
  3. OMEPRAZOLE. [Concomitant]
     Active Substance: OMEPRAZOLE
     Indication: PROPHYLAXIS
  4. SIMVASTATINE [Concomitant]
     Active Substance: SIMVASTATIN
     Indication: BLOOD CHOLESTEROL INCREASED
     Route: 048
     Dates: start: 2015
  5. RIVOTRIL [Concomitant]
     Active Substance: CLONAZEPAM
     Indication: SLEEP DISORDER THERAPY
     Route: 048
     Dates: start: 2015
  6. GARDENAL [Concomitant]
     Active Substance: PHENOBARBITAL
     Indication: SEIZURE
     Route: 048
     Dates: start: 1973
  7. HUMIRA [Suspect]
     Active Substance: ADALIMUMAB
     Indication: RHEUMATOID ARTHRITIS
     Route: 058
     Dates: start: 20160708
  8. PREDNISONE. [Concomitant]
     Active Substance: PREDNISONE
     Indication: PULMONARY FIBROSIS
     Dates: start: 2015
  9. CARBAMAZEPINE. [Concomitant]
     Active Substance: CARBAMAZEPINE
     Indication: SEIZURE
     Route: 048
     Dates: start: 1973
  10. CODEX [Concomitant]
     Active Substance: ACETAMINOPHEN\CODEINE PHOSPHATE
     Indication: PAIN
     Dates: start: 2015

REACTIONS (18)
  - Injection site discolouration [Recovered/Resolved]
  - Asthenia [Not Recovered/Not Resolved]
  - Chest pain [Unknown]
  - Fatigue [Recovering/Resolving]
  - Skin discolouration [Unknown]
  - Nodule [Unknown]
  - Erythema [Unknown]
  - Insomnia [Not Recovered/Not Resolved]
  - Headache [Unknown]
  - Interstitial lung disease [Recovered/Resolved]
  - Decreased appetite [Not Recovered/Not Resolved]
  - Pneumonia [Recovered/Resolved]
  - Peripheral swelling [Not Recovered/Not Resolved]
  - Amnesia [Not Recovered/Not Resolved]
  - Influenza [Unknown]
  - Joint swelling [Not Recovered/Not Resolved]
  - Back pain [Unknown]
  - Memory impairment [Unknown]

NARRATIVE: CASE EVENT DATE: 201610
